FAERS Safety Report 20734908 (Version 1)
Quarter: 2022Q2

REPORT INFORMATION
  Report Type: Spontaneous
  Country: US (occurrence: None)
  Receive Date: 20220420
  Receipt Date: 20220420
  Transmission Date: 20220721
  Serious: Yes (unspecified)
  Sender: FDA-Public Use
  Company Number: None

PATIENT
  Age: 31 Year
  Sex: Male
  Weight: 99 kg

DRUGS (1)
  1. DG HEALTH ALLERGY RELIEF NASAL [Suspect]
     Active Substance: FLUTICASONE PROPIONATE
     Indication: Nasal congestion
     Dosage: OTHER QUANTITY : 1 1 SPRAY;?FREQUENCY : EVERY 8 HOURS;?
     Dates: start: 20211221, end: 20211221

REACTIONS (2)
  - Sinus pain [None]
  - Paranasal sinus haemorrhage [None]

NARRATIVE: CASE EVENT DATE: 20211221
